FAERS Safety Report 8251205-3 (Version None)
Quarter: 2012Q2

REPORT INFORMATION
  Report Type: 
  Country: None (occurrence: None)
  Receive Date: 20120402
  Receipt Date: 20120322
  Transmission Date: 20120825
  Serious: Yes (Hospitalization, Other)
  Sender: FDA-Public Use
  Company Number: JP-MERCK-1203USA00996

PATIENT
  Age: 62 Year
  Sex: Male
  Weight: 71 kg

DRUGS (2)
  1. JANUVIA [Suspect]
     Route: 048
     Dates: start: 20110510
  2. JANUVIA [Suspect]
     Indication: DIABETES MELLITUS
     Route: 048
     Dates: start: 20110405, end: 20110509

REACTIONS (3)
  - DIZZINESS [None]
  - SUDDEN HEARING LOSS [None]
  - ASTHENIA [None]
